FAERS Safety Report 16356473 (Version 1)
Quarter: 2019Q2

REPORT INFORMATION
  Report Type: Spontaneous
  Country: CZ (occurrence: CZ)
  Receive Date: 20190527
  Receipt Date: 20190527
  Transmission Date: 20190711
  Serious: Yes (Other)
  Sender: FDA-Public Use
  Company Number: CZ-BEH-2019102569

PATIENT
  Age: 68 Year
  Sex: Female

DRUGS (9)
  1. TRALGIT [Concomitant]
     Active Substance: TRAMADOL
  2. EUTHYROX [Concomitant]
     Active Substance: LEVOTHYROXINE SODIUM
  3. CALCICHEW [Concomitant]
     Active Substance: CALCIUM CARBONATE
  4. VIGANTOL                           /00318501/ [Concomitant]
     Active Substance: CHOLECALCIFEROL
  5. RIVOTRIL [Concomitant]
     Active Substance: CLONAZEPAM
  6. LYRICA [Concomitant]
     Active Substance: PREGABALIN
  7. MAGNOSOLV [Concomitant]
  8. HIZENTRA [Suspect]
     Active Substance: HUMAN IMMUNOGLOBULIN G
     Indication: HYPOGAMMAGLOBULINAEMIA
     Dosage: 10 ML, BIW
     Route: 058
  9. NOVALGIN (METAMIZOLE SODIUM) [Concomitant]
     Active Substance: METAMIZOLE SODIUM

REACTIONS (7)
  - Vomiting [Unknown]
  - Muscle spasms [Unknown]
  - Administration site induration [Unknown]
  - Contusion [Unknown]
  - Cellulitis [Unknown]
  - Pyrexia [Unknown]
  - Pruritus [Unknown]

NARRATIVE: CASE EVENT DATE: 201904
